FAERS Safety Report 17451088 (Version 2)
Quarter: 2021Q1

REPORT INFORMATION
  Report Type: Spontaneous
  Country: CA (occurrence: CA)
  Receive Date: 20200224
  Receipt Date: 20210212
  Transmission Date: 20210419
  Serious: Yes (Other)
  Sender: FDA-Public Use
  Company Number: CA-PFIZER INC-2020073460

PATIENT
  Age: 33 Year
  Sex: Female
  Weight: 47.62 kg

DRUGS (4)
  1. METHOTREXATE SODIUM. [Suspect]
     Active Substance: METHOTREXATE SODIUM
     Dosage: UNK
  2. PREDNISONE. [Concomitant]
     Active Substance: PREDNISONE
     Dosage: UNK(DOSE UNK, FOR 2 WEEKS)
     Route: 065
  3. IMURAN [Suspect]
     Active Substance: AZATHIOPRINE
     Dosage: UNK
  4. PENTASA [Suspect]
     Active Substance: MESALAMINE
     Dosage: UNK

REACTIONS (3)
  - Disease recurrence [Unknown]
  - Enterocutaneous fistula [Unknown]
  - Drug ineffective [Unknown]
